FAERS Safety Report 5040335-5 (Version None)
Quarter: 2006Q2

REPORT INFORMATION
  Report Type: 
  Country: None (occurrence: None)
  Receive Date: 20060630
  Receipt Date: 20060525
  Transmission Date: 20061013
  Serious: No
  Sender: FDA-Public Use
  Company Number: US-BRISTOL-MYERS SQUIBB COMPANY-13390794

PATIENT
  Age: 69 Year
  Sex: Female
  Weight: 89 kg

DRUGS (3)
  1. ORENCIA [Suspect]
     Indication: RHEUMATOID ARTHRITIS
     Route: 042
     Dates: start: 20060425
  2. PREDNISONE [Concomitant]
  3. ENBREL [Concomitant]

REACTIONS (1)
  - DRUG INEFFECTIVE [None]
